FAERS Safety Report 8863296 (Version 1)
Quarter: 2012Q4

REPORT INFORMATION
  Report Type: 
  Country: LB (occurrence: LB)
  Receive Date: 20121025
  Receipt Date: 20121025
  Transmission Date: 20130627
  Serious: Yes (Hospitalization)
  Sender: FDA-Public Use
  Company Number: PHHY2012LB094223

PATIENT
  Age: 76 Year
  Sex: Female

DRUGS (8)
  1. ONBREZ [Suspect]
     Indication: CHRONIC OBSTRUCTIVE PULMONARY DISEASE
     Dosage: 150 ug, UNK
     Dates: start: 20121006, end: 20121010
  2. PLAVIX [Concomitant]
     Route: 048
  3. GLUCOPHAGE [Concomitant]
     Route: 048
  4. AMARYL [Concomitant]
     Route: 048
  5. AMLOR [Concomitant]
     Route: 048
  6. SPIRIVA ^BOEHRINGER INGELHEIM^ [Concomitant]
  7. SYMBICORT [Concomitant]
  8. OXYGEN [Concomitant]

REACTIONS (3)
  - Renal failure [Recovered/Resolved with Sequelae]
  - Atrial fibrillation [Recovered/Resolved with Sequelae]
  - Tachycardia [Recovered/Resolved with Sequelae]
